FAERS Safety Report 17545058 (Version 1)
Quarter: 2020Q1

REPORT INFORMATION
  Report Type: Spontaneous
  Country: US (occurrence: US)
  Receive Date: 20200313
  Receipt Date: 20200313
  Transmission Date: 20200409
  Serious: Yes (Hospitalization)
  Sender: FDA-Public Use
  Company Number: None

PATIENT
  Sex: Female

DRUGS (22)
  1. LOPERAMIDE [Concomitant]
     Active Substance: LOPERAMIDE
  2. COMPAZINE [Concomitant]
     Active Substance: PROCHLORPERAZINE MALEATE
  3. ALPRAZOLAM. [Concomitant]
     Active Substance: ALPRAZOLAM
  4. ZOFRAN [Concomitant]
     Active Substance: ONDANSETRON HYDROCHLORIDE
  5. ALBUTEROL. [Concomitant]
     Active Substance: ALBUTEROL
  6. SYMBICORT [Concomitant]
     Active Substance: BUDESONIDE\FORMOTEROL FUMARATE DIHYDRATE
  7. BUSPAR [Concomitant]
     Active Substance: BUSPIRONE HYDROCHLORIDE
  8. OXYCODONE [Concomitant]
     Active Substance: OXYCODONE
  9. DULCOLAX NOS [Concomitant]
     Active Substance: BISACODYL OR DOCUSATE SODIUM
  10. CONSTULOSE [Concomitant]
     Active Substance: LACTULOSE
  11. ENOXAPARIN 120MG/0.8ML PFS (10/PK) [Suspect]
     Active Substance: ENOXAPARIN
     Indication: RECTOSIGMOID CANCER
     Route: 058
  12. ONDANSETRON [Concomitant]
     Active Substance: ONDANSETRON
  13. TRAMADOL. [Concomitant]
     Active Substance: TRAMADOL
  14. HYDROXYZINE [Concomitant]
     Active Substance: HYDROXYZINE HYDROCHLORIDE
  15. DILAUDID [Concomitant]
     Active Substance: HYDROMORPHONE HYDROCHLORIDE
  16. CAPECITABINE. [Concomitant]
     Active Substance: CAPECITABINE
  17. LORATADINE. [Concomitant]
     Active Substance: LORATADINE
  18. COLACE [Concomitant]
     Active Substance: DOCUSATE SODIUM
  19. GABAPENTIN. [Concomitant]
     Active Substance: GABAPENTIN
  20. REXULTI [Concomitant]
     Active Substance: BREXPIPRAZOLE
  21. TRAZODONE [Concomitant]
     Active Substance: TRAZODONE HYDROCHLORIDE
  22. TROSPIUM [Concomitant]
     Active Substance: TROSPIUM

REACTIONS (2)
  - Cardiac arrest [None]
  - Throat tightness [None]
